FAERS Safety Report 8792839 (Version 2)
Quarter: 2012Q4

REPORT INFORMATION
  Report Type: 
  Country: DE (occurrence: DE)
  Receive Date: 20120918
  Receipt Date: 20120928
  Transmission Date: 20130627
  Serious: Yes (Hospitalization, Other)
  Sender: FDA-Public Use
  Company Number: DE-ELI_LILLY_AND_COMPANY-DE201209001533

PATIENT
  Sex: Female

DRUGS (4)
  1. FORSTEO [Suspect]
     Indication: OSTEOPOROSIS
     Dosage: UNK, qd
     Route: 058
     Dates: start: 20110920
  2. MARCUMAR [Concomitant]
     Dosage: UNK, unknown
     Route: 065
  3. VITAMIN D [Concomitant]
     Dosage: UNK, unknown
     Route: 065
  4. WATER PILLS [Concomitant]
     Dosage: UNK, unknown
     Route: 065

REACTIONS (4)
  - Atrial fibrillation [Unknown]
  - Hospitalisation [Unknown]
  - Cardiac failure [Unknown]
  - Hypersensitivity [Not Recovered/Not Resolved]
